FAERS Safety Report 19013550 (Version 1)
Quarter: 2021Q1

REPORT INFORMATION
  Report Type: Spontaneous
  Country: US (occurrence: US)
  Receive Date: 20210316
  Receipt Date: 20210316
  Transmission Date: 20210420
  Serious: No
  Sender: FDA-Public Use
  Company Number: None

PATIENT
  Age: 66 Year
  Sex: Female

DRUGS (10)
  1. XELJANZ [Suspect]
     Active Substance: TOFACITINIB CITRATE
     Indication: PSORIATIC ARTHROPATHY
     Route: 048
     Dates: start: 20201214
  2. STIOLTO RESPIMAT [Concomitant]
     Active Substance: OLODATEROL HYDROCHLORIDE\TIOTROPIUM BROMIDE MONOHYDRATE
     Dates: start: 20210302
  3. STIOLTO RESPIMAT [Concomitant]
     Active Substance: OLODATEROL HYDROCHLORIDE\TIOTROPIUM BROMIDE MONOHYDRATE
     Dates: start: 20201105
  4. FLUTICASONE. [Concomitant]
     Active Substance: FLUTICASONE
     Dates: start: 20201201
  5. SOD FLUORIDE PST [Concomitant]
     Dates: start: 20210131
  6. COLESTIPOL [Concomitant]
     Active Substance: COLESTIPOL
     Dates: start: 20210305
  7. EPINEPHRINE. [Concomitant]
     Active Substance: EPINEPHRINE
     Dates: start: 20210105
  8. DICLOFENAC [Concomitant]
     Active Substance: DICLOFENAC
     Dates: start: 20201231
  9. ALBUTEROL. [Concomitant]
     Active Substance: ALBUTEROL
     Dates: start: 20201201
  10. STIOLTO RESPIMAT [Concomitant]
     Active Substance: OLODATEROL HYDROCHLORIDE\TIOTROPIUM BROMIDE MONOHYDRATE
     Dates: start: 20210225

REACTIONS (2)
  - Malaise [None]
  - Condition aggravated [None]

NARRATIVE: CASE EVENT DATE: 20210316
